FAERS Safety Report 5884315-6 (Version None)
Quarter: 2008Q3

REPORT INFORMATION
  Report Type: 
  Country: None (occurrence: None)
  Receive Date: 20080915
  Receipt Date: 20080905
  Transmission Date: 20090109
  Serious: Yes (Hospitalization)
  Sender: FDA-Public Use
  Company Number: DE-WYE-G01300608

PATIENT
  Sex: Male
  Weight: 66 kg

DRUGS (6)
  1. TYGACIL [Suspect]
     Indication: ABDOMINAL ABSCESS
     Route: 042
     Dates: start: 20080304, end: 20080319
  2. TYGACIL [Suspect]
     Route: 042
     Dates: start: 20080303, end: 20080303
  3. CIPRO [Suspect]
  4. TAVANIC [Suspect]
     Dates: start: 20080201, end: 20080301
  5. ENOXAPARIN SODIUM [Concomitant]
     Dosage: UNKNOWN
  6. NOREPINEPHRINE BITARTRATE [Concomitant]
     Dosage: UNKNOWN

REACTIONS (4)
  - BLOOD ALKALINE PHOSPHATASE INCREASED [None]
  - BLOOD BILIRUBIN INCREASED [None]
  - ENTEROCOCCAL INFECTION [None]
  - GAMMA-GLUTAMYLTRANSFERASE INCREASED [None]
